FAERS Safety Report 6942987-9 (Version None)
Quarter: 2010Q3

REPORT INFORMATION
  Report Type: 
  Country: None (occurrence: None)
  Receive Date: 20100826
  Receipt Date: 20100817
  Transmission Date: 20110219
  Serious: Yes (Other)
  Sender: FDA-Public Use
  Company Number: NL-TEVA-245654ISR

PATIENT
  Sex: Male
  Weight: 75 kg

DRUGS (8)
  1. VINCRISTINE [Suspect]
     Indication: NON-HODGKIN'S LYMPHOMA
     Dates: start: 20091106
  2. CYCLOPHOSPHAMIDE [Suspect]
     Indication: NON-HODGKIN'S LYMPHOMA
     Dates: start: 20091106
  3. DOXORUBICIN HYDROCHLORIDE [Suspect]
     Indication: NON-HODGKIN'S LYMPHOMA
     Dates: start: 20091106
  4. PREDNISOLONE [Concomitant]
     Dates: start: 20091106, end: 20091111
  5. PEGFILGRASTIM [Concomitant]
     Dates: start: 20091107, end: 20091108
  6. INSULIN ASPART [Concomitant]
  7. INSULIN DETEMIR [Concomitant]
  8. FENTANYL CITRATE [Concomitant]

REACTIONS (1)
  - SKIN NECROSIS [None]
